FAERS Safety Report 17805233 (Version 2)
Quarter: 2020Q3

REPORT INFORMATION
  Report Type: Report from Study
  Country: US (occurrence: US)
  Receive Date: 20200520
  Receipt Date: 20200722
  Transmission Date: 20201102
  Serious: Yes (Hospitalization)
  Sender: FDA-Public Use
  Company Number: US-BIOGEN-2020BI00874993

PATIENT
  Age: 60 Year
  Sex: Female

DRUGS (2)
  1. TYSABRI [Suspect]
     Active Substance: NATALIZUMAB
     Indication: MULTIPLE SCLEROSIS
     Route: 065
     Dates: start: 20070103, end: 20180605
  2. TYSABRI [Suspect]
     Active Substance: NATALIZUMAB
     Route: 065
     Dates: start: 20190211

REACTIONS (4)
  - Clostridium difficile infection [Recovered/Resolved]
  - Multiple sclerosis relapse [Recovered/Resolved]
  - Scar [Recovered/Resolved]
  - Post procedural infection [Recovered/Resolved]

NARRATIVE: CASE EVENT DATE: 201907
